FAERS Safety Report 20446878 (Version 1)
Quarter: 2022Q1

REPORT INFORMATION
  Report Type: Report from Study
  Country: US (occurrence: US)
  Receive Date: 20220208
  Receipt Date: 20220208
  Transmission Date: 20220424
  Serious: Yes (Hospitalization)
  Sender: FDA-Public Use
  Company Number: US-REGENERON PHARMACEUTICALS, INC.-2021-82606

PATIENT

DRUGS (12)
  1. CEMIPLIMAB [Suspect]
     Active Substance: CEMIPLIMAB
     Indication: Prostate cancer metastatic
     Dosage: 350 MG, Q3W
     Route: 042
     Dates: start: 20210726, end: 20210726
  2. INVESTIGATIONAL PRODUCT [Suspect]
     Active Substance: INVESTIGATIONAL PRODUCT
     Indication: Prostate cancer metastatic
     Dosage: 30 MG, WEEKLY, DL6, DOSE ESCALATION
     Route: 042
     Dates: start: 20210706, end: 20210824
  3. CALCIUM CARBONATE\CHOLECALCIFEROL [Concomitant]
     Active Substance: CALCIUM CARBONATE\CHOLECALCIFEROL
     Indication: Prostate cancer
     Dosage: 600-400 MG, BID
     Route: 048
  4. CYCLOBENZAPRINE [Concomitant]
     Active Substance: CYCLOBENZAPRINE
     Indication: Back pain
     Dosage: 5 MG, AS NECESSARY (PRN)
     Route: 048
  5. FUROSEMIDE [Concomitant]
     Active Substance: FUROSEMIDE
     Indication: Oedema peripheral
     Dosage: 20 MG, QD
     Route: 048
  6. GABAPENTIN [Concomitant]
     Active Substance: GABAPENTIN
     Indication: Sciatica
     Dosage: 300 MG, TID
     Route: 048
  7. IBUPROFEN, FAMOTIDINE [Concomitant]
     Indication: Back pain
     Dosage: 800-26.6 MG, PRN (AS NECESSARY)
     Route: 048
  8. MELOXICAM [Concomitant]
     Active Substance: MELOXICAM
     Indication: Back pain
     Dosage: 7.5 MG, AS NECESSARY (PRN)
     Route: 048
  9. TERAZOSIN [Concomitant]
     Active Substance: TERAZOSIN HYDROCHLORIDE
     Indication: Pollakiuria
     Dosage: 10 MG, BID
     Route: 048
  10. ZOLOFT [Concomitant]
     Active Substance: SERTRALINE HYDROCHLORIDE
     Indication: Depression
     Dosage: 25 MG, QD
     Route: 048
     Dates: start: 20210802
  11. IBUPROFEN [Concomitant]
     Active Substance: IBUPROFEN
     Indication: Headache
     Dosage: 800 MG, ONE TIME ONLY (OTO)
     Route: 048
     Dates: start: 20210802, end: 20210802
  12. IMODIUM [Concomitant]
     Active Substance: LOPERAMIDE HYDROCHLORIDE
     Indication: Diarrhoea
     Dosage: 2 MG, AS NECESSARY (PRN)
     Route: 048
     Dates: start: 20210817

REACTIONS (2)
  - Lichenoid keratosis [Recovering/Resolving]
  - Stomatitis [Recovered/Resolved]

NARRATIVE: CASE EVENT DATE: 20210831
